FAERS Safety Report 7028833-6 (Version None)
Quarter: 2010Q4

REPORT INFORMATION
  Report Type: 
  Country: None (occurrence: None)
  Receive Date: 20101005
  Receipt Date: 20100924
  Transmission Date: 20110411
  Serious: Yes (Hospitalization, Other)
  Sender: FDA-Public Use
  Company Number: US-MYLANLABS-2010S1016262

PATIENT
  Age: 61 Year
  Sex: Male
  Weight: 111.59 kg

DRUGS (12)
  1. METFORMIN HCL [Suspect]
     Route: 048
  2. ACTOS [Suspect]
     Route: 048
  3. JANUVIA [Suspect]
     Route: 048
  4. LIPITOR [Suspect]
     Route: 048
  5. VICTOZA [Suspect]
     Indication: TYPE 2 DIABETES MELLITUS
     Route: 058
     Dates: start: 20100808, end: 20100812
  6. TRICOR [Concomitant]
     Route: 048
  7. LOSARTAN POTASSIUM [Concomitant]
     Route: 048
  8. GLIPIZIDE [Concomitant]
     Route: 048
  9. BENADRYL [Concomitant]
  10. MULTI-VITAMINS [Concomitant]
  11. FISH OIL [Concomitant]
  12. CALCIUM [Concomitant]

REACTIONS (1)
  - ACUTE MYOCARDIAL INFARCTION [None]
